FAERS Safety Report 4289527-3 (Version None)
Quarter: 2004Q1

REPORT INFORMATION
  Report Type: 
  Country: None (occurrence: None)
  Receive Date: 20040205
  Receipt Date: 20040126
  Transmission Date: 20041129
  Serious: Yes (Hospitalization)
  Sender: FDA-Public Use
  Company Number: 200411086GDDC

PATIENT
  Age: 75 Year
  Sex: Male

DRUGS (1)
  1. DESMOPRESSIN ACETATE [Suspect]
     Dosage: IN

REACTIONS (3)
  - COMA [None]
  - CONFUSIONAL STATE [None]
  - HYPONATRAEMIA [None]
